FAERS Safety Report 6498607-3 (Version None)
Quarter: 2009Q4

REPORT INFORMATION
  Report Type: 
  Country: None (occurrence: None)
  Receive Date: 20091215
  Receipt Date: 20091207
  Transmission Date: 20100525
  Serious: Yes (Other)
  Sender: FDA-Public Use
  Company Number: US-ASTRAZENECA-2009SE31118

PATIENT
  Age: 12 Year
  Sex: Male

DRUGS (2)
  1. SEROQUEL [Suspect]
     Indication: BASAL GANGLION DEGENERATION
     Route: 048
  2. LITHIUM [Concomitant]

REACTIONS (4)
  - HEPATIC ENZYME INCREASED [None]
  - OVERDOSE [None]
  - THYROID DISORDER [None]
  - WEIGHT INCREASED [None]
